FAERS Safety Report 8589750-3 (Version None)
Quarter: 2012Q3

REPORT INFORMATION
  Report Type: 
  Country: None (occurrence: None)
  Receive Date: 20120813
  Receipt Date: 20120731
  Transmission Date: 20120928
  Serious: Yes (Hospitalization)
  Sender: FDA-Public Use
  Company Number: FR-ROCHE-1083994

PATIENT
  Age: 46 Year
  Sex: Male
  Weight: 79 kg

DRUGS (12)
  1. ACUPAN [Concomitant]
     Dates: start: 20120614
  2. PROGRAF [Concomitant]
     Dates: start: 20120614
  3. PEGINTERFERON ALFA-2A [Suspect]
     Indication: HEPATITIS C
  4. COPEGUS [Suspect]
     Indication: HEPATITIS C
     Route: 048
     Dates: start: 20110517, end: 20120614
  5. OGAST [Concomitant]
     Dates: start: 20120614
  6. PEGINTERFERON ALFA-2B [Suspect]
     Indication: HEPATITIS C
     Dates: start: 20110517, end: 20120614
  7. VICTRELIS [Suspect]
     Indication: HEPATITIS C
     Dates: start: 20110614, end: 20120426
  8. MORPHIN HCL [Concomitant]
     Dates: start: 20120614
  9. MEDROL [Concomitant]
     Dates: start: 20120614
  10. INSULIN [Concomitant]
     Dates: start: 20120614, end: 20120614
  11. LOVENOX [Concomitant]
     Dates: start: 20120614
  12. CELL CEPT [Concomitant]

REACTIONS (1)
  - HEPATIC NEOPLASM MALIGNANT [None]
